FAERS Safety Report 9989845 (Version 1)
Quarter: 2014Q1

REPORT INFORMATION
  Report Type: Spontaneous
  Country: FR (occurrence: FR)
  Receive Date: 20140310
  Receipt Date: 20140310
  Transmission Date: 20141002
  Serious: Yes (Death, Hospitalization)
  Sender: FDA-Public Use
  Company Number: FR-SA-2014SA026640

PATIENT
  Age: 86 Year
  Sex: Male

DRUGS (9)
  1. LANTUS [Suspect]
     Indication: TYPE 2 DIABETES MELLITUS
     Route: 058
     Dates: end: 20131115
  2. NOVORAPID [Suspect]
     Indication: TYPE 2 DIABETES MELLITUS
     Route: 058
     Dates: end: 20131115
  3. LASILIX [Concomitant]
     Dosage: STRENGTH: 40 MG
  4. BISOPROLOL [Concomitant]
  5. TEMESTA [Concomitant]
  6. CORVASAL [Concomitant]
  7. TAHOR [Concomitant]
     Dosage: STRENGTH: 10 MG
  8. PREVISCAN [Concomitant]
     Dosage: STRENGTH: 20 MG
  9. VEINAMITOL [Concomitant]

REACTIONS (1)
  - Hypoglycaemic coma [Fatal]
